FAERS Safety Report 9377179 (Version 1)
Quarter: 2013Q3

REPORT INFORMATION
  Report Type: Spontaneous
  Country: GR (occurrence: GR)
  Receive Date: 20130701
  Receipt Date: 20130701
  Transmission Date: 20140515
  Serious: Yes (Other)
  Sender: FDA-Public Use
  Company Number: GR-NOVOPROD-381353

PATIENT
  Age: 61 Year
  Sex: Female

DRUGS (1)
  1. VAGIFEM [Suspect]
     Indication: PRODUCT USED FOR UNKNOWN INDICATION
     Route: 067
     Dates: start: 20130617

REACTIONS (6)
  - Bladder disorder [Unknown]
  - Breast disorder [Unknown]
  - Vaginal disorder [Unknown]
  - Swelling [Unknown]
  - Pain [Unknown]
  - Discomfort [Unknown]
